FAERS Safety Report 10869583 (Version 1)
Quarter: 2015Q1

REPORT INFORMATION
  Report Type: Report from Study
  Country: NL (occurrence: NL)
  Receive Date: 20150226
  Receipt Date: 20150226
  Transmission Date: 20150721
  Serious: Yes (Other)
  Sender: FDA-Public Use
  Company Number: NL-AMGEN-NLDSL2015017102

PATIENT
  Age: 57 Year
  Sex: Female

DRUGS (2)
  1. OXAZEPAM. [Concomitant]
     Active Substance: OXAZEPAM
     Dosage: UNK
  2. NEULASTA [Suspect]
     Active Substance: PEGFILGRASTIM
     Indication: PRODUCT USED FOR UNKNOWN INDICATION
     Dosage: 6 MG, Q3WK
     Route: 058
     Dates: start: 20150130

REACTIONS (4)
  - Surgery [Unknown]
  - Pyrexia [Recovering/Resolving]
  - Myalgia [Recovered/Resolved]
  - Bone pain [Recovered/Resolved]

NARRATIVE: CASE EVENT DATE: 20150130
